FAERS Safety Report 9282732 (Version 3)
Quarter: 2013Q2

REPORT INFORMATION
  Report Type: Spontaneous
  Country: IT (occurrence: IT)
  Receive Date: 20130510
  Receipt Date: 20130618
  Transmission Date: 20140414
  Serious: Yes (Other)
  Sender: FDA-Public Use
  Company Number: IT-BRISTOL-MYERS SQUIBB COMPANY-18881037

PATIENT
  Age: 70 Year
  Sex: Female

DRUGS (6)
  1. ERBITUX SOLN FOR INF [Suspect]
     Indication: COLON CANCER
     Dosage: 5MG/ML INF.?LAST DOSE: 21NOV12
     Route: 042
     Dates: start: 20120918, end: 20121121
  2. FLUOROURACIL [Suspect]
     Indication: ADENOCARCINOMA OF COLON
     Dosage: FLUOROURACIL TEVA 612MG:27SEP2012-21NOV2012(55D)?5G,/100ML INF.?LST DOSE:21NOV12
     Route: 042
     Dates: start: 20120927, end: 20121121
  3. OXALIPLATIN [Suspect]
     Indication: COLON CANCER
     Dosage: 1MG CYCLICAL:27SEP2012-21NOV2012-55DAYS?LAST DOSE: 21NOV12
     Route: 042
     Dates: start: 20120927, end: 20121121
  4. ONDANSETRON [Concomitant]
     Indication: PROPHYLAXIS OF NAUSEA AND VOMITING
     Route: 042
     Dates: start: 20120927, end: 20121121
  5. SOLDESAM [Concomitant]
     Dosage: 1DF:8MG/2ML
     Route: 042
     Dates: start: 20120927, end: 20121121
  6. RANIDIL [Concomitant]
     Dosage: 1DF:50MG/5ML
     Route: 042
     Dates: start: 20120927, end: 20121121

REACTIONS (6)
  - Paraesthesia [Recovering/Resolving]
  - Vertigo [Recovering/Resolving]
  - Abdominal pain [Recovering/Resolving]
  - Erythema [Recovering/Resolving]
  - Pruritus [Recovering/Resolving]
  - Fatigue [Recovering/Resolving]
